FAERS Safety Report 11368623 (Version 1)
Quarter: 2015Q3

REPORT INFORMATION
  Report Type: Spontaneous
  Country: US (occurrence: US)
  Receive Date: 20150812
  Receipt Date: 20150812
  Transmission Date: 20151125
  Serious: No
  Sender: FDA-Public Use
  Company Number: US-ASTRAZENECA-2015SE74809

PATIENT
  Sex: Male

DRUGS (3)
  1. SYMBICORT [Suspect]
     Active Substance: BUDESONIDE\FORMOTEROL FUMARATE DIHYDRATE
     Dosage: UNKNOWN
     Route: 055
     Dates: start: 20140808
  2. VENTOLIN [Concomitant]
     Active Substance: ALBUTEROL SULFATE
  3. TUDORZA PRESSAIR [Suspect]
     Active Substance: ACLIDINIUM BROMIDE
     Route: 055
     Dates: start: 20140214

REACTIONS (8)
  - Dyspnoea [Unknown]
  - Device malfunction [Unknown]
  - Cardiac disorder [Unknown]
  - General physical condition abnormal [Unknown]
  - Drug dose omission [Unknown]
  - PO2 abnormal [Unknown]
  - Malaise [Unknown]
  - Fatigue [Unknown]
